FAERS Safety Report 8312381 (Version 4)
Quarter: 2012Q4

REPORT INFORMATION
  Report Type: 
  Country: BE (occurrence: BE)
  Receive Date: 20111227
  Receipt Date: 20120911
  Transmission Date: 20130627
  Serious: Yes (Other)
  Sender: FDA-Public Use
  Company Number: BE-PFIZER INC-2011042531

PATIENT
  Age: 58 Year
  Sex: Male
  Weight: 67 kg

DRUGS (5)
  1. CHAMPIX [Suspect]
     Indication: SMOKING CESSATION THERAPY
     Dosage: 0.5 mg, 1x/day
     Route: 048
     Dates: start: 20101012
  2. CHAMPIX [Interacting]
     Dosage: 1 mg, 2x/day
     Route: 048
  3. TENORMIN [Interacting]
     Dosage: 50 mg, 1x/day
     Route: 048
     Dates: start: 2003
  4. LISINOPRIL [Concomitant]
     Dosage: UNK, 1x/day
     Route: 048
     Dates: start: 20100308
  5. INEGY [Concomitant]
     Dosage: UNK, 1x/day
     Route: 048
     Dates: start: 20100714

REACTIONS (4)
  - Drug interaction [Unknown]
  - Psoriasis [Recovered/Resolved]
  - Stress [Recovered/Resolved]
  - Tobacco user [Unknown]
